FAERS Safety Report 4746391-3 (Version None)
Quarter: 2005Q3

REPORT INFORMATION
  Report Type: 
  Country: None (occurrence: None)
  Receive Date: 20050815
  Receipt Date: 20050729
  Transmission Date: 20060218
  Serious: Yes (Other)
  Sender: FDA-Public Use
  Company Number: 2005112803

PATIENT
  Age: 55 Year
  Sex: Male
  Weight: 80 kg

DRUGS (2)
  1. CABERGOLINE [Suspect]
     Indication: ILL-DEFINED DISORDER
     Dosage: ORAL
     Route: 048
  2. LEVODOPA (LEVODOPA) [Concomitant]

REACTIONS (3)
  - PARAPHILIA [None]
  - PATHOLOGICAL GAMBLING [None]
  - PSYCHOSEXUAL DISORDER [None]
